FAERS Safety Report 5796276-9 (Version None)
Quarter: 2008Q2

REPORT INFORMATION
  Report Type: 
  Country: None (occurrence: None)
  Receive Date: 20080618
  Receipt Date: 20070712
  Transmission Date: 20081010
  Serious: Yes (Other)
  Sender: FDA-Public Use
  Company Number: 200715070US

PATIENT
  Age: 50 Year
  Sex: Male

DRUGS (5)
  1. LANTUS [Suspect]
     Indication: TYPE 2 DIABETES MELLITUS
     Dosage: 100 U
  2. METFORMIN HCL [Concomitant]
  3. DIAZEPAM (DIATEX) [Concomitant]
  4. LASIX [Concomitant]
  5. LISINOPRIL [Concomitant]

REACTIONS (4)
  - HEADACHE [None]
  - HYPERGLYCAEMIA [None]
  - MEDICATION ERROR [None]
  - VISION BLURRED [None]
